FAERS Safety Report 25393525 (Version 1)
Quarter: 2025Q2

REPORT INFORMATION
  Report Type: Spontaneous
  Country: US (occurrence: US)
  Receive Date: 20250604
  Receipt Date: 20250604
  Transmission Date: 20250716
  Serious: No
  Sender: ROCHE
  Company Number: US-ROCHE-10000298276

PATIENT
  Sex: Female

DRUGS (3)
  1. XOLAIR [Suspect]
     Active Substance: OMALIZUMAB
     Indication: Urticaria
     Dosage: (STRENGTH REPORTED AS: 300 MG/2ML)
     Route: 058
     Dates: start: 202408
  2. XOLAIR [Suspect]
     Active Substance: OMALIZUMAB
     Dosage: (STRENGTH REPORTED AS: 75 MG/0.5ML)
     Route: 058
     Dates: start: 202408
  3. XOLAIR [Concomitant]
     Active Substance: OMALIZUMAB

REACTIONS (2)
  - Urticaria [Unknown]
  - Off label use [Unknown]
